FAERS Safety Report 5482640-4 (Version None)
Quarter: 2007Q4

REPORT INFORMATION
  Report Type: 
  Country: None (occurrence: None)
  Receive Date: 20071011
  Receipt Date: 20071010
  Transmission Date: 20080405
  Serious: No
  Sender: FDA-Public Use
  Company Number: A0679204A

PATIENT
  Age: 55 Year
  Sex: Female

DRUGS (5)
  1. TYKERB [Suspect]
     Indication: BREAST CANCER
     Dosage: 250MG FIVE TIMES PER DAY
     Route: 048
     Dates: start: 20070706
  2. CELEXA [Concomitant]
  3. WELLBUTRIN [Concomitant]
  4. NEURONTIN [Concomitant]
  5. ZOMETA [Concomitant]

REACTIONS (4)
  - CHAPPED LIPS [None]
  - FATIGUE [None]
  - NAUSEA [None]
  - PRURITUS GENERALISED [None]
